FAERS Safety Report 14508385 (Version 3)
Quarter: 2018Q1

REPORT INFORMATION
  Report Type: Spontaneous
  Country: JP (occurrence: JP)
  Receive Date: 20180209
  Receipt Date: 20180329
  Transmission Date: 20180509
  Serious: Yes (Death, Hospitalization, Other)
  Sender: FDA-Public Use
  Company Number: JP-BRISTOL-MYERS SQUIBB COMPANY-BMS-2017-118496

PATIENT
  Age: 61 Year
  Sex: Male

DRUGS (1)
  1. OPDIVO [Suspect]
     Active Substance: NIVOLUMAB
     Indication: GASTRIC CANCER
     Dosage: 3 MG/KG, Q2WK
     Route: 041
     Dates: start: 20171211, end: 20171211

REACTIONS (4)
  - Malignant neoplasm progression [Recovering/Resolving]
  - Death [Fatal]
  - Interstitial lung disease [Recovering/Resolving]
  - Pneumonia bacterial [Unknown]

NARRATIVE: CASE EVENT DATE: 20171214
